FAERS Safety Report 15801534 (Version 1)
Quarter: 2019Q1

REPORT INFORMATION
  Report Type: Spontaneous
  Country: CA (occurrence: CA)
  Receive Date: 20190109
  Receipt Date: 20190109
  Transmission Date: 20190417
  Serious: Yes (Other)
  Sender: FDA-Public Use
  Company Number: CA-MYLANLABS-2019M1000964

PATIENT
  Age: 54 Year
  Sex: Male

DRUGS (4)
  1. CORTEF [Suspect]
     Active Substance: HYDROCORTISONE
     Indication: MALAISE
     Dosage: 20 MILLIGRAM, PRN
  2. CORTEF [Suspect]
     Active Substance: HYDROCORTISONE
     Indication: NASOPHARYNGITIS
     Dosage: UNK
  3. CORTEF [Suspect]
     Active Substance: HYDROCORTISONE
     Indication: INFLUENZA
  4. SYNTHROID [Suspect]
     Active Substance: LEVOTHYROXINE SODIUM
     Indication: PRODUCT USED FOR UNKNOWN INDICATION
     Dosage: 0.112 MILLIGRAM, QD

REACTIONS (4)
  - Product use in unapproved indication [Not Recovered/Not Resolved]
  - Growth hormone deficiency [Not Recovered/Not Resolved]
  - Pituitary tumour [Not Recovered/Not Resolved]
  - Fatigue [Not Recovered/Not Resolved]
